FAERS Safety Report 9219054 (Version 1)
Quarter: 2013Q2

REPORT INFORMATION
  Report Type: Spontaneous
  Country: DE (occurrence: CO)
  Receive Date: 20130409
  Receipt Date: 20130409
  Transmission Date: 20140414
  Serious: Yes (Hospitalization)
  Sender: FDA-Public Use
  Company Number: PHHY2013CO034048

PATIENT
  Sex: Male

DRUGS (4)
  1. DAFIRO [Suspect]
     Dosage: (AMLODIPINE 5MG AND VALSARTAN 160MG), UNK
     Dates: start: 2011, end: 201303
  2. DAFIRO [Suspect]
     Dosage: (AMLODIPINE 10MG AND VALSARTAN 160MG), UNK
     Dates: start: 201303, end: 20130404
  3. DAFIRO [Suspect]
     Dosage: (AMLODIPINE 05MG AND VALSARTAN 160MG), UNK
     Dates: start: 20130404
  4. ATENOLOL [Concomitant]
     Dosage: 25 MG, UNK

REACTIONS (8)
  - Inflammation [Recovering/Resolving]
  - Cardiac disorder [Recovering/Resolving]
  - Loss of consciousness [Recovering/Resolving]
  - Fall [Recovering/Resolving]
  - Face injury [Recovering/Resolving]
  - Mouth injury [Recovering/Resolving]
  - Chest injury [Recovering/Resolving]
  - Drug dispensing error [Unknown]
